FAERS Safety Report 7952451-6 (Version None)
Quarter: 2011Q4

REPORT INFORMATION
  Report Type: 
  Country: None (occurrence: None)
  Receive Date: 20111201
  Receipt Date: 20111123
  Transmission Date: 20120403
  Serious: Yes (Hospitalization)
  Sender: FDA-Public Use
  Company Number: GB-VALEANT-2011VX003469

PATIENT
  Sex: Female

DRUGS (2)
  1. MESTINON [Suspect]
     Route: 048
  2. PIPERACILLIN AND TAZOBACTAM [Concomitant]
     Route: 065

REACTIONS (3)
  - INFECTION [None]
  - DYSPHAGIA [None]
  - MALAISE [None]
